FAERS Safety Report 15890258 (Version 3)
Quarter: 2019Q3

REPORT INFORMATION
  Report Type: Report from Study
  Country: None (occurrence: US)
  Receive Date: 20190130
  Receipt Date: 20190704
  Transmission Date: 20191004
  Serious: Yes (Hospitalization, Other)
  Sender: FDA-Public Use
  Company Number: US-ABBVIE-18K-163-2255005-00

PATIENT
  Age: 65 Year
  Sex: Female

DRUGS (3)
  1. VERAPAMIL ER [Concomitant]
     Active Substance: VERAPAMIL HYDROCHLORIDE
     Indication: PRODUCT USED FOR UNKNOWN INDICATION
  2. CARDIZEM [Concomitant]
     Active Substance: DILTIAZEM HYDROCHLORIDE
     Indication: PRODUCT USED FOR UNKNOWN INDICATION
  3. HUMIRA [Suspect]
     Active Substance: ADALIMUMAB
     Indication: RHEUMATOID ARTHRITIS
     Route: 058
     Dates: start: 201610

REACTIONS (13)
  - Macular hole [Unknown]
  - Eye haemorrhage [Unknown]
  - Blood pressure increased [Unknown]
  - Macular rupture [Not Recovered/Not Resolved]
  - Nephrolithiasis [Recovered/Resolved]
  - Nodule [Not Recovered/Not Resolved]
  - Fall [Unknown]
  - Peripheral nerve transposition [Recovered/Resolved]
  - Scleritis [Recovering/Resolving]
  - Concussion [Unknown]
  - Bronchitis [Recovered/Resolved]
  - Macular oedema [Not Recovered/Not Resolved]
  - Headache [Not Recovered/Not Resolved]

NARRATIVE: CASE EVENT DATE: 2016
